FAERS Safety Report 11574639 (Version 2)
Quarter: 2015Q4

REPORT INFORMATION
  Report Type: Spontaneous
  Country: US (occurrence: US)
  Receive Date: 20150916
  Receipt Date: 20151027
  Transmission Date: 20160304
  Serious: No
  Sender: FDA-Public Use
  Company Number: US-ELI_LILLY_AND_COMPANY-US200911002174

PATIENT
  Sex: Female

DRUGS (5)
  1. FORTEO [Suspect]
     Active Substance: TERIPARATIDE
     Dosage: 20 UG, DAILY (1/D)
  2. FORTEO [Suspect]
     Active Substance: TERIPARATIDE
     Indication: OSTEOPOROSIS
     Dosage: UNK,UNK
     Dates: start: 200907, end: 20090911
  3. SECNOL [Concomitant]
     Active Substance: SECNIDAZOLE
  4. FORTEO [Suspect]
     Active Substance: TERIPARATIDE
     Dosage: 20 UG, DAILY (1/D)
  5. DIAZEPAM. [Concomitant]
     Active Substance: DIAZEPAM

REACTIONS (9)
  - Bladder disorder [Unknown]
  - Arthritis [Unknown]
  - Muscle spasms [Unknown]
  - Adverse event [Unknown]
  - Limb discomfort [Unknown]
  - Urinary retention [Unknown]
  - Back pain [Not Recovered/Not Resolved]
  - Arthropathy [Unknown]
  - Pain [Unknown]
